FAERS Safety Report 10285110 (Version 3)
Quarter: 2015Q4

REPORT INFORMATION
  Report Type: Spontaneous
  Country: US (occurrence: US)
  Receive Date: 20140708
  Receipt Date: 20151112
  Transmission Date: 20160304
  Serious: Yes (Hospitalization)
  Sender: FDA-Public Use
  Company Number: US-PFIZER INC-2014185473

PATIENT
  Age: 9 Month
  Sex: Female

DRUGS (1)
  1. FOSPHENYTOIN SODIUM. [Suspect]
     Active Substance: FOSPHENYTOIN SODIUM
     Indication: SEIZURE
     Dosage: 125 MG/KG
     Route: 042

REACTIONS (11)
  - Hypotension [Recovering/Resolving]
  - Tachycardia [Recovered/Resolved]
  - Product use issue [Unknown]
  - Capillary nail refill test abnormal [Recovering/Resolving]
  - Anticonvulsant drug level increased [Recovering/Resolving]
  - Accidental overdose [Recovering/Resolving]
  - Hypoxia [Recovered/Resolved]
  - Cardiogenic shock [Recovered/Resolved]
  - Acute respiratory failure [Recovering/Resolving]
  - Cardiomyopathy [Recovered/Resolved]
  - Pulse abnormal [Recovering/Resolving]
